FAERS Safety Report 7157911-6 (Version None)
Quarter: 2010Q4

REPORT INFORMATION
  Report Type: 
  Country: None (occurrence: None)
  Receive Date: 20101214
  Receipt Date: 20101207
  Transmission Date: 20110411
  Serious: Yes (Disabling)
  Sender: FDA-Public Use
  Company Number: AU-MERCK-1009USA01701

PATIENT
  Age: 63 Year
  Sex: Female
  Weight: 69 kg

DRUGS (8)
  1. MAXALT [Suspect]
     Indication: MIGRAINE
     Route: 048
     Dates: start: 20100909
  2. MAXALT [Suspect]
     Route: 048
     Dates: start: 20100909
  3. TOPAMAX [Concomitant]
     Route: 065
  4. PERINDOPRIL [Concomitant]
     Route: 065
  5. CROCIN [Concomitant]
     Route: 065
  6. ALLEGRON [Concomitant]
     Route: 065
  7. ZOMIG [Concomitant]
     Route: 065
  8. NUROFEN PLUS [Concomitant]
     Route: 065

REACTIONS (1)
  - DRUG INEFFECTIVE [None]
